FAERS Safety Report 7941429-4 (Version None)
Quarter: 2011Q4

REPORT INFORMATION
  Report Type: 
  Country: None (occurrence: None)
  Receive Date: 20111122
  Receipt Date: 20111109
  Transmission Date: 20120403
  Serious: Yes (Other)
  Sender: FDA-Public Use
  Company Number: 1000025549

PATIENT
  Age: 56 Year
  Sex: Female
  Weight: 77 kg

DRUGS (1)
  1. ROFLUMILAST (ROFLUMILAST) (TABLETS) [Suspect]
     Indication: CHRONIC OBSTRUCTIVE PULMONARY DISEASE
     Dosage: (500 MCG), ORAL
     Route: 048
     Dates: start: 20110315, end: 20110320

REACTIONS (4)
  - CARDIOVASCULAR INSUFFICIENCY [None]
  - CHEST PAIN [None]
  - DIZZINESS [None]
  - HEADACHE [None]
